FAERS Safety Report 21919066 (Version 3)
Quarter: 2023Q1

REPORT INFORMATION
  Report Type: Spontaneous
  Country: US (occurrence: US)
  Receive Date: 20230127
  Receipt Date: 20230214
  Transmission Date: 20230418
  Serious: No
  Sender: FDA-Public Use
  Company Number: US-UNITED THERAPEUTICS-UNT-2023-001719

PATIENT
  Age: 82 Year
  Sex: Female
  Weight: 61.224 kg

DRUGS (5)
  1. REMODULIN [Suspect]
     Active Substance: TREPROSTINIL
     Indication: Pulmonary arterial hypertension
     Dosage: 0.00425 ?G/KG, (PRE-FILLED WITH 2.8 ML/CASSETTE AT PUMP RATE OF 16 MCL/HOUR) CONTINUING
     Route: 058
     Dates: start: 20230116
  2. REMODULIN [Suspect]
     Active Substance: TREPROSTINIL
     Dosage: 0.006 ?G/KG (PHARMACY PRE-FILLED WITH 3 ML PER CASSETTE AT A PUMP RATE OF 23 MCL PER HOUR), CONTINUI
     Route: 058
     Dates: start: 202301
  3. REMODULIN [Suspect]
     Active Substance: TREPROSTINIL
     Indication: Pulmonary arterial hypertension
     Dosage: 0.012 ?G/KG (PHARMACY PRE-FILLED WITH 2.4 ML PER CASSETTE; AT A PUMP RATE OF 18 MCL PER HOUR), CONTI
     Route: 058
  4. FAMOTIDINE [Suspect]
     Active Substance: FAMOTIDINE
     Indication: Product used for unknown indication
     Dosage: UNK
     Route: 065
  5. FAMOTIDINE [Suspect]
     Active Substance: FAMOTIDINE
     Dosage: UNK UNK, BID
     Route: 065

REACTIONS (15)
  - Flushing [Unknown]
  - Device difficult to use [Unknown]
  - Device leakage [Unknown]
  - Device use error [Unknown]
  - Device failure [Unknown]
  - Dysphagia [Unknown]
  - Gastrooesophageal reflux disease [Unknown]
  - Oropharyngeal discomfort [Unknown]
  - Secretion discharge [Unknown]
  - Decreased appetite [Unknown]
  - Weight decreased [Unknown]
  - Device failure [Recovered/Resolved]
  - Abdominal pain upper [Not Recovered/Not Resolved]
  - Dyspepsia [Unknown]
  - Therapy non-responder [Unknown]

NARRATIVE: CASE EVENT DATE: 20230101
